FAERS Safety Report 21592553 (Version 1)
Quarter: 2022Q4

REPORT INFORMATION
  Report Type: Spontaneous
  Country: US (occurrence: None)
  Receive Date: 20221112
  Receipt Date: 20221112
  Transmission Date: 20230113
  Serious: Yes (Hospitalization)
  Sender: FDA-Public Use
  Company Number: None

PATIENT
  Age: 84 Year
  Sex: Female
  Weight: 71.3 kg

DRUGS (6)
  1. DOCETAXEL [Suspect]
     Active Substance: DOCETAXEL
     Dates: end: 20221027
  2. PERTUZUMAB [Suspect]
     Active Substance: PERTUZUMAB
     Dates: end: 20221027
  3. HERCEPTIN [Suspect]
     Active Substance: TRASTUZUMAB
     Dates: end: 20221027
  4. ARMOUR THYROID [Concomitant]
     Active Substance: THYROID, PORCINE
  5. CELEBREX [Concomitant]
  6. ZYRTEC [Concomitant]
     Active Substance: CETIRIZINE HYDROCHLORIDE

REACTIONS (8)
  - Fall [None]
  - Head injury [None]
  - Asthenia [None]
  - Cerebral artery stenosis [None]
  - Cerebral infarction [None]
  - Ischaemic stroke [None]
  - Muscular weakness [None]
  - Anaemia [None]

NARRATIVE: CASE EVENT DATE: 20221031
